FAERS Safety Report 13258862 (Version 1)
Quarter: 2017Q1

REPORT INFORMATION
  Report Type: Spontaneous
  Country: ES (occurrence: ES)
  Receive Date: 20170222
  Receipt Date: 20170222
  Transmission Date: 20170428
  Serious: Yes (Other)
  Sender: FDA-Public Use
  Company Number: ES-BRISTOL-MYERS SQUIBB COMPANY-BMS-2017-013049

PATIENT
  Age: 63 Year
  Sex: Male
  Weight: 80 kg

DRUGS (3)
  1. OPDIVO [Suspect]
     Active Substance: NIVOLUMAB
     Indication: RENAL CANCER METASTATIC
     Dosage: 3 MG/KG, Q2WK
     Route: 042
     Dates: start: 20151117, end: 20160915
  2. CALCIUM SANDOZ D [Concomitant]
     Indication: PRODUCT USED FOR UNKNOWN INDICATION
     Dosage: 1 DF, UNK
     Route: 048
     Dates: start: 2014
  3. FERPLEX [Concomitant]
     Indication: PRODUCT USED FOR UNKNOWN INDICATION
     Dosage: 40 MG, UNK
     Route: 065
     Dates: start: 2014

REACTIONS (1)
  - Pemphigoid [Recovered/Resolved with Sequelae]

NARRATIVE: CASE EVENT DATE: 20161215
